FAERS Safety Report 5108881-3 (Version None)
Quarter: 2006Q3

REPORT INFORMATION
  Report Type: 
  Country: None (occurrence: None)
  Receive Date: 20060915
  Receipt Date: 20060915
  Transmission Date: 20061208
  Serious: Yes (Hospitalization)
  Sender: FDA-Public Use
  Company Number: None

PATIENT
  Age: 55 Year
  Sex: Male
  Weight: 86.9 kg

DRUGS (16)
  1. BUSULFAN MUD TRANSPLANT [Suspect]
     Indication: ACUTE MYELOID LEUKAEMIA
     Dosage: 50 MG /PO
     Route: 048
     Dates: start: 20060727, end: 20060730
  2. BUSULFAN MUD TRANSPLANT [Suspect]
     Indication: CHEMOTHERAPY
     Dosage: 50 MG /PO
     Route: 048
     Dates: start: 20060727, end: 20060730
  3. CYTOXAN [Suspect]
     Indication: ACUTE MYELOID LEUKAEMIA
     Dosage: 4490 MG /IV
     Route: 042
     Dates: start: 20060731, end: 20060802
  4. CYTOXAN [Suspect]
     Indication: CHEMOTHERAPY
     Dosage: 4490 MG /IV
     Route: 042
     Dates: start: 20060731, end: 20060802
  5. TACROLIMUS [Concomitant]
  6. METHYLPREDNISOLONE [Concomitant]
  7. REMICADE [Concomitant]
  8. TRIAMCINOLONE [Concomitant]
  9. DESONIDE [Concomitant]
  10. NEUPOGEN [Concomitant]
  11. CASPOFUNGIN [Concomitant]
  12. ACYCLOVIR [Concomitant]
  13. CIPROFLOXACIN [Concomitant]
  14. AZTREONAM [Concomitant]
  15. FENTANYL [Concomitant]
  16. ACTIGALL [Concomitant]

REACTIONS (5)
  - AMNESIA [None]
  - BLOOD BILIRUBIN ABNORMAL [None]
  - GASTROINTESTINAL HAEMORRHAGE [None]
  - GRAFT VERSUS HOST DISEASE [None]
  - POST PROCEDURAL COMPLICATION [None]
